FAERS Safety Report 15333211 (Version 1)
Quarter: 2018Q3

REPORT INFORMATION
  Report Type: Spontaneous
  Country: US (occurrence: US)
  Receive Date: 20180830
  Receipt Date: 20180830
  Transmission Date: 20181010
  Serious: No
  Sender: FDA-Public Use
  Company Number: US-JNJFOC-20180802683

PATIENT
  Age: 60 Year
  Sex: Female
  Weight: 58.06 kg

DRUGS (3)
  1. WOMENS ROGAINE [Suspect]
     Active Substance: MINOXIDIL
     Route: 061
  2. WOMENS ROGAINE [Suspect]
     Active Substance: MINOXIDIL
     Indication: ALOPECIA
     Dosage: 1?2 ML
     Route: 061
     Dates: start: 20180601
  3. ACCUTANE [Concomitant]
     Active Substance: ISOTRETINOIN
     Indication: ACNE
     Route: 065

REACTIONS (2)
  - Overdose [Unknown]
  - Hair texture abnormal [Not Recovered/Not Resolved]

NARRATIVE: CASE EVENT DATE: 2018
